FAERS Safety Report 6407967-0 (Version None)
Quarter: 2009Q4

REPORT INFORMATION
  Report Type: 
  Country: None (occurrence: None)
  Receive Date: 20091016
  Receipt Date: 20090918
  Transmission Date: 20100525
  Serious: Yes (Other)
  Sender: FDA-Public Use
  Company Number: 2009010228

PATIENT
  Age: 72 Year
  Sex: Female
  Weight: 70.7611 kg

DRUGS (27)
  1. NUVIGIL [Suspect]
     Indication: HYPERSOMNIA
     Dosage: 150 MG (150 MG, 1 IN 1 D), ORAL, 150 MG (150 MG, 1 IN 1 D), ORAL
     Route: 048
     Dates: start: 20090824, end: 20090827
  2. NUVIGIL [Suspect]
     Indication: SLEEP APNOEA SYNDROME
     Dosage: 150 MG (150 MG, 1 IN 1 D), ORAL, 150 MG (150 MG, 1 IN 1 D), ORAL
     Route: 048
     Dates: start: 20090824, end: 20090827
  3. NUVIGIL [Suspect]
     Indication: HYPERSOMNIA
     Dosage: 150 MG (150 MG, 1 IN 1 D), ORAL, 150 MG (150 MG, 1 IN 1 D), ORAL
     Route: 048
     Dates: start: 20090901, end: 20090904
  4. NUVIGIL [Suspect]
     Indication: SLEEP APNOEA SYNDROME
     Dosage: 150 MG (150 MG, 1 IN 1 D), ORAL, 150 MG (150 MG, 1 IN 1 D), ORAL
     Route: 048
     Dates: start: 20090901, end: 20090904
  5. SYNTHROID [Concomitant]
  6. DIOVAN [Concomitant]
  7. CARTIA XT [Concomitant]
  8. CLONIDINE [Concomitant]
  9. LEXAPRO [Concomitant]
  10. TRIAMTERENE AND HYDROCHLOROTHIAZIDE [Concomitant]
  11. SIMVASTATIN [Concomitant]
  12. ATENOLOL [Concomitant]
  13. PRISTIZ (DESVENLAFAXINSUCCINATE) [Concomitant]
  14. LORAZEPAM [Concomitant]
  15. RANITIDINE [Concomitant]
  16. PRILOSEC [Concomitant]
  17. ASPIRIN [Concomitant]
  18. AMBIEN [Concomitant]
  19. IBUPROFEN [Concomitant]
  20. MULTIPLE VITAMINS (VITAMINS NOS) [Concomitant]
  21. CALCIUM (CALCIUM) [Concomitant]
  22. COENZYME Q10 [Concomitant]
  23. OMEGA 3 FISH OIL (FISH OIL) [Concomitant]
  24. COSAMIN DS (ASCORBIC ACID, GLUCOSAMINE HYDROCHLORIDE, CHONDROITIN SULF [Concomitant]
  25. VITAMIN B2 (RIBOFLAVIN) [Concomitant]
  26. MAGNESIUM (MAGNESIUM) [Concomitant]
  27. VITAMIN B12 [Concomitant]

REACTIONS (6)
  - APHTHOUS STOMATITIS [None]
  - COUGH [None]
  - DYSPHAGIA [None]
  - OROPHARYNGEAL PAIN [None]
  - STEVENS-JOHNSON SYNDROME [None]
  - VIRAL INFECTION [None]
